FAERS Safety Report 16104448 (Version 5)
Quarter: 2019Q2

REPORT INFORMATION
  Report Type: Spontaneous
  Country: ES (occurrence: ES)
  Receive Date: 20190322
  Receipt Date: 20190529
  Transmission Date: 20190711
  Serious: Yes (Hospitalization)
  Sender: FDA-Public Use
  Company Number: ES-ROCHE-2285531

PATIENT
  Age: 59 Year
  Sex: Male

DRUGS (1)
  1. TECENTRIQ [Suspect]
     Active Substance: ATEZOLIZUMAB
     Indication: LUNG NEOPLASM MALIGNANT
     Route: 065
     Dates: start: 20181120, end: 20190306

REACTIONS (3)
  - Myelitis transverse [Recovering/Resolving]
  - Motor dysfunction [Not Recovered/Not Resolved]
  - Bladder sphincter atony [Not Recovered/Not Resolved]

NARRATIVE: CASE EVENT DATE: 20190314
